FAERS Safety Report 5052007-1 (Version None)
Quarter: 2006Q3

REPORT INFORMATION
  Report Type: 
  Country: None (occurrence: None)
  Receive Date: 20060711
  Receipt Date: 20060620
  Transmission Date: 20061208
  Serious: Yes (Other)
  Sender: FDA-Public Use
  Company Number: US200606004618

PATIENT
  Sex: Male

DRUGS (3)
  1. CYMBALTA [Suspect]
  2. TOPAMAX [Concomitant]
  3. LORAZEPAM [Concomitant]

REACTIONS (2)
  - CONVULSION [None]
  - DYSKINESIA [None]
